FAERS Safety Report 15908264 (Version 1)
Quarter: 2019Q1

REPORT INFORMATION
  Report Type: Spontaneous
  Country: US (occurrence: US)
  Receive Date: 20190204
  Receipt Date: 20190204
  Transmission Date: 20190417
  Serious: No
  Sender: FDA-Public Use
  Company Number: US-ABBVIE-18K-163-2255997-00

PATIENT
  Age: 34 Year
  Sex: Female
  Weight: 89.89 kg

DRUGS (2)
  1. HUMIRA [Suspect]
     Active Substance: ADALIMUMAB
     Indication: IRITIS
     Route: 058
     Dates: start: 2011, end: 201504
  2. HUMIRA [Suspect]
     Active Substance: ADALIMUMAB
     Indication: ANKYLOSING SPONDYLITIS
     Route: 058
     Dates: start: 201601, end: 201602

REACTIONS (4)
  - Exposure during pregnancy [Unknown]
  - Sciatica [Recovered/Resolved]
  - Back injury [Unknown]
  - Live birth [Unknown]

NARRATIVE: CASE EVENT DATE: 201511
